FAERS Safety Report 7970138-0 (Version None)
Quarter: 2011Q4

REPORT INFORMATION
  Report Type: 
  Country: None (occurrence: None)
  Receive Date: 20111212
  Receipt Date: 20111205
  Transmission Date: 20120403
  Serious: Yes (Other)
  Sender: FDA-Public Use
  Company Number: US-UCBSA-047088

PATIENT
  Age: 64 Year
  Sex: Female
  Weight: 54.43 kg

DRUGS (2)
  1. NO CONCOMITANT MEDICATION [Concomitant]
  2. CIMZIA [Suspect]
     Indication: RHEUMATOID ARTHRITIS
     Dosage: ONE SHOT ONCE A MONTH
     Route: 058
     Dates: start: 20110501, end: 20111001

REACTIONS (1)
  - HEAD AND NECK CANCER [None]
